FAERS Safety Report 10858226 (Version 1)
Quarter: 2015Q1

REPORT INFORMATION
  Report Type: Spontaneous
  Country: US (occurrence: US)
  Receive Date: 20150223
  Receipt Date: 20150223
  Transmission Date: 20150721
  Serious: Yes (Hospitalization)
  Sender: FDA-Public Use
  Company Number: US-AMGEN-USASP2014007970

PATIENT
  Age: 17 Year
  Sex: Male

DRUGS (1)
  1. ENBREL [Suspect]
     Active Substance: ETANERCEPT
     Indication: SPONDYLITIS
     Dosage: 25 MG, 2 TIMES/WK
     Route: 065
     Dates: start: 20131001

REACTIONS (3)
  - Influenza [Recovered/Resolved]
  - Respiratory tract infection [Not Recovered/Not Resolved]
  - Arachnoid cyst [Unknown]

NARRATIVE: CASE EVENT DATE: 20131218
